FAERS Safety Report 8363878-5 (Version None)
Quarter: 2012Q2

REPORT INFORMATION
  Report Type: 
  Country: None (occurrence: None)
  Receive Date: 20120515
  Receipt Date: 20120515
  Transmission Date: 20120825
  Serious: No
  Sender: FDA-Public Use
  Company Number: None

PATIENT
  Sex: Male
  Weight: 112.0385 kg

DRUGS (2)
  1. ZUPLENZ [Concomitant]
  2. OXALIPLATIN [Suspect]
     Indication: GASTROINTESTINAL DISORDER
     Dosage: 160MG IV
     Route: 042
     Dates: start: 20120501

REACTIONS (2)
  - NAUSEA [None]
  - VOMITING [None]
